FAERS Safety Report 6566220-5 (Version None)
Quarter: 2010Q1

REPORT INFORMATION
  Report Type: 
  Country: None (occurrence: None)
  Receive Date: 20100202
  Receipt Date: 20100122
  Transmission Date: 20100710
  Serious: Yes (Hospitalization, Other)
  Sender: FDA-Public Use
  Company Number: US-PFIZER INC-2010011002

PATIENT
  Sex: Male
  Weight: 61.224 kg

DRUGS (1)
  1. LIPITOR [Suspect]
     Indication: BLOOD CHOLESTEROL INCREASED
     Dosage: 30 MG, 1X/DAY
     Route: 048

REACTIONS (2)
  - CORONARY ARTERY BYPASS [None]
  - TENDONITIS [None]
